FAERS Safety Report 9520990 (Version 3)
Quarter: 2013Q4

REPORT INFORMATION
  Report Type: Spontaneous
  Country: JP (occurrence: JP)
  Receive Date: 20130913
  Receipt Date: 20131003
  Transmission Date: 20140711
  Serious: Yes (Hospitalization)
  Sender: FDA-Public Use
  Company Number: JP-ROCHE-1270304

PATIENT
  Age: 65 Year
  Sex: Female

DRUGS (4)
  1. ACTEMRA [Suspect]
     Indication: RHEUMATOID ARTHRITIS
     Dosage: UNCERTAIN DOSAGE AND SIX TIME ADMINISTERING
     Route: 042
     Dates: start: 20130319, end: 20130819
  2. METHOTREXATE [Concomitant]
     Indication: RHEUMATOID ARTHRITIS
     Route: 065
  3. PREDONINE [Concomitant]
     Route: 065
  4. PREDONINE [Concomitant]
     Route: 065

REACTIONS (1)
  - Interstitial lung disease [Unknown]
